FAERS Safety Report 25818826 (Version 1)
Quarter: 2025Q3

REPORT INFORMATION
  Report Type: Spontaneous
  Country: US (occurrence: None)
  Receive Date: 20250918
  Receipt Date: 20250918
  Transmission Date: 20251020
  Serious: Yes (Hospitalization, Other)
  Sender: FDA-CTU
  Company Number: None

PATIENT
  Age: 67 Year
  Sex: Female

DRUGS (7)
  1. RISANKIZUMAB [Suspect]
     Active Substance: RISANKIZUMAB
     Indication: Psoriasis
     Dates: start: 20200302, end: 20250905
  2. SECUKINUMAB [Concomitant]
     Active Substance: SECUKINUMAB
  3. ALPRAZOLAM [Concomitant]
     Active Substance: ALPRAZOLAM
  4. ATORVASTATIN [Concomitant]
     Active Substance: ATORVASTATIN
  5. LISINOPRIL [Concomitant]
     Active Substance: LISINOPRIL
  6. LORATADINE [Concomitant]
     Active Substance: LORATADINE
  7. PANTOPRAZOLE [Concomitant]
     Active Substance: PANTOPRAZOLE

REACTIONS (1)
  - Myopericarditis [None]

NARRATIVE: CASE EVENT DATE: 20250904
